FAERS Safety Report 9433460 (Version 1)
Quarter: 2013Q3

REPORT INFORMATION
  Report Type: Spontaneous
  Country: GB (occurrence: GB)
  Receive Date: 20130731
  Receipt Date: 20130731
  Transmission Date: 20140515
  Serious: Yes (Other)
  Sender: FDA-Public Use
  Company Number: GB-MYLANLABS-2013S1015946

PATIENT
  Age: 67 Year
  Sex: Male

DRUGS (4)
  1. ROPINIROLE [Suspect]
     Indication: PARKINSON^S DISEASE
     Route: 048
     Dates: start: 2012, end: 201210
  2. ROPINIROLE [Suspect]
     Indication: PARKINSON^S DISEASE
     Route: 048
     Dates: start: 201210
  3. CO-CARELDOPA [Concomitant]
     Indication: PRODUCT USED FOR UNKNOWN INDICATION
  4. SELEGILINE [Concomitant]
     Indication: PRODUCT USED FOR UNKNOWN INDICATION

REACTIONS (3)
  - Hypotension [Unknown]
  - Parkinsonian crisis [Recovered/Resolved]
  - Withdrawal syndrome [Recovered/Resolved]
